FAERS Safety Report 14223906 (Version 4)
Quarter: 2018Q4

REPORT INFORMATION
  Report Type: Report from Study
  Country: US (occurrence: US)
  Receive Date: 20171126
  Receipt Date: 20181116
  Transmission Date: 20190204
  Serious: No
  Sender: FDA-Public Use
  Company Number: PHEH2017US038136

PATIENT
  Age: 54 Year
  Sex: Male

DRUGS (2)
  1. COSENTYX [Suspect]
     Active Substance: SECUKINUMAB
     Dosage: 300 MG, QMO
     Route: 058
     Dates: start: 20171111
  2. COSENTYX [Suspect]
     Active Substance: SECUKINUMAB
     Indication: PSORIASIS
     Dosage: 300 MG, QW
     Route: 058
     Dates: start: 20171110

REACTIONS (9)
  - Oropharyngeal pain [Unknown]
  - Eye pruritus [Unknown]
  - Diarrhoea [Unknown]
  - Pruritus [Unknown]
  - Erythema [Unknown]
  - Lymphadenopathy [Unknown]
  - Nasal congestion [Unknown]
  - Urticaria [Unknown]
  - Malaise [Unknown]

NARRATIVE: CASE EVENT DATE: 20171117
